FAERS Safety Report 8858342 (Version 1)
Quarter: 2012Q4

REPORT INFORMATION
  Report Type: 
  Country: US (occurrence: US)
  Receive Date: 20121024
  Receipt Date: 20121024
  Transmission Date: 20130627
  Serious: No
  Sender: FDA-Public Use
  Company Number: US-AMGEN-USASP2012000353

PATIENT
  Age: 51 Year
  Sex: Female
  Weight: 60.77 kg

DRUGS (8)
  1. ENBREL [Suspect]
     Indication: PRODUCT USED FOR UNKNOWN INDICATION
     Dosage: 50 mg, qwk
     Route: 058
  2. VITAMIN A /00056001/ [Concomitant]
     Dosage: UNK
  3. VITAMIN C                          /00008001/ [Concomitant]
     Dosage: UNK
  4. MULTIVITAMIN                       /00097801/ [Concomitant]
     Dosage: UNK
  5. FOLIC ACID [Concomitant]
     Dosage: 5 mg, UNK
  6. NAPROXEN [Concomitant]
     Dosage: 250 mg, UNK
  7. METHOTREXATE [Concomitant]
     Dosage: 2.5 mg, UNK
  8. TRAMADOL HCL [Concomitant]
     Dosage: 50 mg, UNK

REACTIONS (5)
  - Gingival blister [Unknown]
  - Sneezing [Unknown]
  - Rash [Unknown]
  - Nasopharyngitis [Unknown]
  - Pyrexia [Unknown]
